FAERS Safety Report 16843745 (Version 2)
Quarter: 2019Q4

REPORT INFORMATION
  Report Type: Spontaneous
  Country: GR (occurrence: GR)
  Receive Date: 20190924
  Receipt Date: 20191220
  Transmission Date: 20200122
  Serious: Yes (Other)
  Sender: FDA-Public Use
  Company Number: GR-ACCORD-155328

PATIENT
  Age: 66 Year
  Sex: Male

DRUGS (5)
  1. EZETIMIBE/SIMVASTATIN [Suspect]
     Active Substance: EZETIMIBE\SIMVASTATIN
     Indication: HYPERLIPIDAEMIA
     Dosage: 10/10 MILLIGRAM
     Route: 065
  2. ATORVASTATIN/ATORVASTATIN CALCIUM [Suspect]
     Active Substance: ATORVASTATIN CALCIUM
     Indication: HYPERLIPIDAEMIA
     Route: 065
  3. EZETIMIBE/SIMVASTATIN [Suspect]
     Active Substance: EZETIMIBE\SIMVASTATIN
     Indication: HYPERLIPIDAEMIA
     Dosage: 20 MG
     Route: 065
  4. EZETIMIBE. [Concomitant]
     Active Substance: EZETIMIBE
     Indication: HYPERLIPIDAEMIA
     Dosage: 10 MG, UNK
     Route: 065
  5. METHYLPREDNISOLONE. [Suspect]
     Active Substance: METHYLPREDNISOLONE
     Indication: MYOSITIS
     Dosage: 1 G, QMO
     Route: 042

REACTIONS (7)
  - Immune-mediated myositis [Recovering/Resolving]
  - Myositis [Recovering/Resolving]
  - Drug ineffective [Unknown]
  - Myopathy [Recovering/Resolving]
  - Atrophy [Recovering/Resolving]
  - Muscular weakness [Recovering/Resolving]
  - Necrotising myositis [Recovering/Resolving]
